FAERS Safety Report 18229653 (Version 2)
Quarter: 2020Q3

REPORT INFORMATION
  Report Type: Spontaneous
  Country: CN (occurrence: CN)
  Receive Date: 20200903
  Receipt Date: 20200910
  Transmission Date: 20201103
  Serious: Yes (Hospitalization, Other)
  Sender: FDA-Public Use
  Company Number: CN-CELGENEUS-CHN-20200900194

PATIENT
  Age: 58 Year
  Sex: Male

DRUGS (9)
  1. AZACITIDINE. [Suspect]
     Active Substance: AZACITIDINE
     Indication: ACUTE MYELOID LEUKAEMIA
     Dosage: 100 MILLIGRAM
     Route: 058
     Dates: start: 20200708, end: 20200716
  2. BIAPENEM [Concomitant]
     Active Substance: BIAPENEM
     Indication: INFECTION PROPHYLAXIS
     Dosage: 1.2 MILLIGRAM
     Route: 041
     Dates: start: 20200803
  3. ACYCLOVIR. [Concomitant]
     Active Substance: ACYCLOVIR
     Indication: INFECTION PROPHYLAXIS
     Dosage: 0.4 MILLIGRAM
     Route: 048
     Dates: start: 20200803
  4. CYTARABINE. [Suspect]
     Active Substance: CYTARABINE
     Indication: ACUTE MYELOID LEUKAEMIA
     Dosage: .2 GRAM
     Route: 041
     Dates: start: 20200708, end: 20200711
  5. CYTARABINE. [Suspect]
     Active Substance: CYTARABINE
     Dosage: .716 GRAM
     Route: 041
     Dates: start: 20200711, end: 20200718
  6. FLUCONAZOLE. [Concomitant]
     Active Substance: FLUCONAZOLE
     Indication: INFECTION PROPHYLAXIS
     Dosage: 50 MILLIGRAM
     Route: 048
     Dates: start: 20200803
  7. STERILE WATER [Concomitant]
     Active Substance: WATER
     Indication: PRODUCT USED FOR UNKNOWN INDICATION
     Dosage: 4 MILLILITER (SOLVENT)
     Route: 058
     Dates: start: 20200708, end: 20200716
  8. CYTARABINE HYDROCHLORIDE [Suspect]
     Active Substance: CYTARABINE HYDROCHLORIDE
     Indication: ACUTE MYELOID LEUKAEMIA
     Dosage: 0.2 GRAM
     Route: 041
     Dates: start: 20200708, end: 20200711
  9. IDARUBICIN HYDROCHLORIDE. [Suspect]
     Active Substance: IDARUBICIN HYDROCHLORIDE
     Indication: ACUTE MYELOID LEUKAEMIA
     Dosage: 20 MILLIGRAM
     Route: 041
     Dates: start: 20200711, end: 20200714

REACTIONS (2)
  - Epistaxis [Recovering/Resolving]
  - Pancytopenia [Recovering/Resolving]

NARRATIVE: CASE EVENT DATE: 20200802
